FAERS Safety Report 8481335-2 (Version None)
Quarter: 2012Q3

REPORT INFORMATION
  Report Type: 
  Country: None (occurrence: None)
  Receive Date: 20120702
  Receipt Date: 20120622
  Transmission Date: 20120928
  Serious: Yes (Hospitalization)
  Sender: FDA-Public Use
  Company Number: US-JNJFOC-20120213164

PATIENT
  Sex: Female

DRUGS (18)
  1. SYNTHROID [Concomitant]
     Route: 065
  2. LISINOPRIL [Concomitant]
     Route: 065
  3. REMICADE [Suspect]
     Indication: COLITIS ULCERATIVE
     Route: 042
     Dates: start: 20111122
  4. ATENOLOL [Concomitant]
     Route: 065
  5. CALCIUM CHLORIDE [Concomitant]
     Route: 065
  6. REMICADE [Suspect]
     Route: 042
     Dates: start: 20120217
  7. REMICADE [Suspect]
     Route: 042
     Dates: start: 20100701
  8. STEROIDS NOS [Suspect]
     Indication: CROHN'S DISEASE
     Route: 065
  9. CIPROFLOXACIN HCL [Concomitant]
     Route: 065
  10. SOLU-MEDROL [Concomitant]
     Route: 065
  11. REMICADE [Suspect]
     Route: 042
     Dates: start: 20120217
  12. CELEXA [Concomitant]
     Route: 065
  13. REMICADE [Suspect]
     Route: 042
     Dates: start: 20100701
  14. REMICADE [Suspect]
     Indication: CROHN'S DISEASE
     Route: 042
     Dates: start: 20111122
  15. SODIUM CHLORIDE [Concomitant]
     Route: 065
  16. ZOFRAN [Concomitant]
     Route: 065
  17. KAYEXALATE [Concomitant]
     Route: 065
  18. INSULIN [Concomitant]
     Route: 065

REACTIONS (9)
  - SYNCOPE [None]
  - DEHYDRATION [None]
  - ANAEMIA [None]
  - DECREASED APPETITE [None]
  - HYPOALBUMINAEMIA [None]
  - HYPOKALAEMIA [None]
  - URINARY TRACT INFECTION [None]
  - HAEMATURIA [None]
  - CLOSTRIDIUM DIFFICILE COLITIS [None]
